FAERS Safety Report 9183312 (Version 1)
Quarter: 2012Q4

REPORT INFORMATION
  Report Type: 
  Country: BE (occurrence: BE)
  Receive Date: 20121030
  Receipt Date: 20121030
  Transmission Date: 20130627
  Serious: Yes (Hospitalization)
  Sender: FDA-Public Use
  Company Number: PHHY2012BE096864

PATIENT
  Age: 26 None
  Sex: Female

DRUGS (4)
  1. EXJADE [Suspect]
     Indication: SICKLE CELL ANAEMIA
     Dosage: 1250 mg, UNK
  2. EXJADE [Suspect]
     Dosage: 1500 mg, UNK
  3. EXJADE [Suspect]
     Dosage: 1250 mg and 1000 mg on alternate days
  4. HYDREA [Concomitant]

REACTIONS (2)
  - Diarrhoea [Unknown]
  - Dehydration [Unknown]
